FAERS Safety Report 24262917 (Version 1)
Quarter: 2024Q3

REPORT INFORMATION
  Report Type: Spontaneous
  Country: US (occurrence: US)
  Receive Date: 20240829
  Receipt Date: 20240829
  Transmission Date: 20241016
  Serious: No
  Sender: IMMUNOGEN
  Company Number: US-IMMUNOGEN, INC.-US-IMGN-24-00500

PATIENT

DRUGS (2)
  1. ELAHERE [Suspect]
     Active Substance: MIRVETUXIMAB SORAVTANSINE-GYNX
     Indication: Product used for unknown indication
     Dosage: 5 MILLIGRAM PER HOUR, UNK
     Route: 042
     Dates: start: 20240311, end: 20240311
  2. ELAHERE [Suspect]
     Active Substance: MIRVETUXIMAB SORAVTANSINE-GYNX
     Dosage: 3 MILLIGRAM PER HOUR, UNK
     Route: 042

REACTIONS (2)
  - Abdominal pain [Recovered/Resolved]
  - Infusion related reaction [Recovered/Resolved]

NARRATIVE: CASE EVENT DATE: 20240311
